FAERS Safety Report 5832850-9 (Version None)
Quarter: 2008Q3

REPORT INFORMATION
  Report Type: 
  Country: None (occurrence: None)
  Receive Date: 20080731
  Receipt Date: 20080718
  Transmission Date: 20090109
  Serious: Yes (Other)
  Sender: FDA-Public Use
  Company Number: 2008001710

PATIENT
  Sex: Female

DRUGS (1)
  1. TARCEVA [Suspect]
     Dates: start: 20060101

REACTIONS (1)
  - MESENTERIC PANNICULITIS [None]
